FAERS Safety Report 9959758 (Version 1)
Quarter: 2014Q1

REPORT INFORMATION
  Report Type: Spontaneous
  Country: US (occurrence: US)
  Receive Date: 20140305
  Receipt Date: 20140305
  Transmission Date: 20141002
  Serious: Yes (Other)
  Sender: FDA-Public Use
  Company Number: US-ABBVIE-13P-163-1105170-00

PATIENT
  Age: 40 Year
  Sex: Female

DRUGS (3)
  1. HUMIRA [Suspect]
     Indication: PRODUCT USED FOR UNKNOWN INDICATION
     Dosage: LOADING DOSE
     Dates: start: 201105, end: 201105
  2. HUMIRA [Suspect]
     Dates: start: 201105, end: 201105
  3. HUMIRA [Suspect]

REACTIONS (1)
  - Breast cancer [Not Recovered/Not Resolved]
